FAERS Safety Report 15114259 (Version 1)
Quarter: 2018Q3

REPORT INFORMATION
  Report Type: Spontaneous
  Country: US (occurrence: US)
  Receive Date: 20180706
  Receipt Date: 20180706
  Transmission Date: 20181010
  Serious: Yes (Other)
  Sender: FDA-Public Use
  Company Number: US-SUNOVION-2018SUN002673

PATIENT
  Sex: Female

DRUGS (1)
  1. LONHALA MAGNAIR [Suspect]
     Active Substance: GLYCOPYRROLATE
     Indication: CHRONIC OBSTRUCTIVE PULMONARY DISEASE
     Dosage: UNK
     Route: 055

REACTIONS (7)
  - Central venous catheterisation [Unknown]
  - Fatigue [Unknown]
  - Fluid retention [Unknown]
  - Urinary retention [Unknown]
  - Constipation [Unknown]
  - Depression [Unknown]
  - Weight increased [Unknown]
